FAERS Safety Report 4629467-0 (Version None)
Quarter: 2005Q2

REPORT INFORMATION
  Report Type: 
  Country: None (occurrence: None)
  Receive Date: 20050405
  Receipt Date: 20050106
  Transmission Date: 20051028
  Serious: Yes (Death, Hospitalization)
  Sender: FDA-Public Use
  Company Number: 13527

PATIENT
  Age: 71 Year
  Sex: Male

DRUGS (8)
  1. CLOFARABINE [Suspect]
     Indication: ACUTE MYELOID LEUKAEMIA
     Dosage: 56.1 MG QD X 5 IV
     Route: 042
     Dates: start: 20041208, end: 20041212
  2. SOLBUTAMOLL [Concomitant]
  3. LANSOPRAZOLE [Concomitant]
  4. CO-CODAMOL [Concomitant]
  5. GENTAMICIN [Concomitant]
  6. TAZOCIN [Concomitant]
  7. TEICOPLANIN [Concomitant]
  8. NEUPOGEN [Concomitant]

REACTIONS (20)
  - ABSCESS [None]
  - ARTHRALGIA [None]
  - CULTURE POSITIVE [None]
  - CYTOMEGALOVIRUS INFECTION [None]
  - GASTRITIS [None]
  - HEPATIC LESION [None]
  - HEPATIC NECROSIS [None]
  - HYPOKALAEMIA [None]
  - HYPOMAGNESAEMIA [None]
  - LETHARGY [None]
  - LUNG ABSCESS [None]
  - NEUTROPENIC SEPSIS [None]
  - OESOPHAGITIS [None]
  - OPPORTUNISTIC INFECTION [None]
  - PLEURITIC PAIN [None]
  - RENAL CYST [None]
  - SPLENIC LESION [None]
  - SYSTEMIC CANDIDA [None]
  - ULCER [None]
  - WEIGHT DECREASED [None]
